FAERS Safety Report 12597630 (Version 2)
Quarter: 2016Q3

REPORT INFORMATION
  Report Type: Spontaneous
  Country: US (occurrence: US)
  Receive Date: 20160726
  Receipt Date: 20160930
  Transmission Date: 20161109
  Serious: Yes (Other)
  Sender: FDA-Public Use
  Company Number: US-OTSUKA-2016_017574

PATIENT
  Sex: Male

DRUGS (3)
  1. ABILIFY MAINTENA [Suspect]
     Active Substance: ARIPIPRAZOLE
     Indication: PRODUCT USED FOR UNKNOWN INDICATION
     Dosage: 300 MG, UNK
     Route: 030
     Dates: start: 2013
  2. ABILIFY MAINTENA [Suspect]
     Active Substance: ARIPIPRAZOLE
     Dosage: 400 MG, UNK
     Route: 030
  3. ABILIFY MAINTENA [Suspect]
     Active Substance: ARIPIPRAZOLE
     Dosage: 300 MG, UNK
     Route: 030
     Dates: end: 2014

REACTIONS (5)
  - Back pain [Unknown]
  - Muscle tightness [Unknown]
  - Abdominal pain upper [Unknown]
  - Abdominal pain [Unknown]
  - Malaise [Unknown]
